FAERS Safety Report 9164504 (Version 1)
Quarter: 2013Q1

REPORT INFORMATION
  Report Type: Spontaneous
  Country: GB (occurrence: None)
  Receive Date: 20130221
  Receipt Date: 20130221
  Transmission Date: 20140127
  Serious: Yes (Hospitalization)
  Sender: FDA-Public Use
  Company Number: SYM-2013-00510

PATIENT
  Age: 65 Year
  Sex: 0

DRUGS (12)
  1. 5-FU [Suspect]
     Indication: COLORECTAL CANCER METASTATIC
     Dosage: 2400 MG/M2, NOT OTHERWISE SPECIFIED
     Route: 042
     Dates: start: 20121001, end: 20121001
  2. AFLIBERCEPT [Suspect]
     Indication: COLORECTAL CANCER METASTATIC
     Dosage: 4 MG/KG, INTRAVENOUS (NOT OTHERWISE SPECIFIED)
     Route: 042
     Dates: start: 20121001, end: 20121001
  3. IRINOTECAN [Suspect]
     Indication: COLORECTAL CANCER METASTATIC
     Dosage: 180 MG/M2, INTRAVENOUS (NOT OTHERWISE SPECIFIED)
     Route: 042
     Dates: start: 20121001, end: 20121001
  4. LEUCOVORIN [Suspect]
     Indication: COLORECTAL CANCER METASTATIC
     Dosage: 400 MG/M2, INTRAVENOUS (NOT OTHERWISE SPECIFIED)
     Route: 042
     Dates: start: 20121001, end: 20121001
  5. CALCIUM CHANNEL BLOCKERS (CALCIUM CHANNEL BLOCKERS) (UNKNOWN) [Concomitant]
  6. LOPERAMIDE (LOPERAMIDE) (UNKNOWN) (LOPERAMIDE) [Concomitant]
  7. VITAMIN B12 (CYANOCOBALAMIN) (UNKNOWN) (CYANOCOBALAMIN) [Concomitant]
  8. LACTULOSE (LACTULOSE) (UNKNOWN) (LACTULOSE) [Concomitant]
  9. ANTIBIOTICS (ANTIBIOTICS) (UNKNOWN) [Concomitant]
  10. STREPSILS (GUAIFENESIN) (UNKNOWN) (GUAIFENESIN) [Concomitant]
  11. DIFFLAM (BENZYDAMINE HYDROCHLORIDE) (UNKNOWN) (BENZYDAMINE HYDROCHLORIDE) [Concomitant]
  12. MACROGOL (MACROGOL) (UNKNOWN) (MACROGOL) [Concomitant]

REACTIONS (2)
  - Neutropenic infection [None]
  - Upper respiratory tract infection [None]
